FAERS Safety Report 7326599-3 (Version None)
Quarter: 2011Q1

REPORT INFORMATION
  Report Type: 
  Country: None (occurrence: None)
  Receive Date: 20110302
  Receipt Date: 20110221
  Transmission Date: 20110831
  Serious: Yes (Hospitalization)
  Sender: FDA-Public Use
  Company Number: US-ASTRAZENECA-2011SE09804

PATIENT
  Age: 76 Year
  Sex: Female

DRUGS (3)
  1. OMEPRAZOLE [Suspect]
     Route: 048
  2. NEXIUM [Suspect]
     Route: 048
     Dates: start: 20040101
  3. REGLAN [Concomitant]

REACTIONS (5)
  - DYSPEPSIA [None]
  - GASTRIC ULCER HAEMORRHAGE [None]
  - DRUG DOSE OMISSION [None]
  - HAEMATEMESIS [None]
  - DRUG INEFFECTIVE [None]
